FAERS Safety Report 12554790 (Version 3)
Quarter: 2022Q2

REPORT INFORMATION
  Report Type: Spontaneous
  Country: US (occurrence: US)
  Receive Date: 20160713
  Receipt Date: 20220421
  Transmission Date: 20220720
  Serious: No
  Sender: FDA-Public Use
  Company Number: US-BIOMARINAP-US-2016-110412

PATIENT
  Age: 6 Year
  Sex: Female

DRUGS (1)
  1. KUVAN [Suspect]
     Active Substance: SAPROPTERIN DIHYDROCHLORIDE
     Indication: Product used for unknown indication
     Dosage: 10 MILLIGRAM/KILOGRAM, QD
     Route: 048
     Dates: start: 201804

REACTIONS (7)
  - Hallucination [Recovered/Resolved]
  - Limb asymmetry [Unknown]
  - Hepatomegaly [Unknown]
  - Dental caries [Unknown]
  - Lip disorder [Unknown]
  - Growth accelerated [Unknown]
  - Rhinorrhoea [Unknown]
